FAERS Safety Report 8163395-1 (Version None)
Quarter: 2012Q1

REPORT INFORMATION
  Report Type: 
  Country: None (occurrence: None)
  Receive Date: 20120224
  Receipt Date: 20120216
  Transmission Date: 20120608
  Serious: Yes (Other)
  Sender: FDA-Public Use
  Company Number: US-US-EMD SERONO, INC.-7107636

PATIENT
  Sex: Female
  Weight: 57 kg

DRUGS (4)
  1. REBIF [Suspect]
     Indication: MULTIPLE SCLEROSIS
     Route: 058
     Dates: start: 20050303
  2. LEVOXYL [Concomitant]
     Indication: HYPOTHYROIDISM
  3. VESICARE [Concomitant]
     Indication: DYSURIA
  4. MULTIVITAMIN CA + VITAMIN D [Concomitant]

REACTIONS (2)
  - LIVER FUNCTION TEST ABNORMAL [None]
  - HEPATIC STEATOSIS [None]
